FAERS Safety Report 9942151 (Version 1)
Quarter: 2014Q1

REPORT INFORMATION
  Report Type: Report from Study
  Country: US (occurrence: US)
  Receive Date: 20140303
  Receipt Date: 20140303
  Transmission Date: 20141002
  Serious: No
  Sender: FDA-Public Use
  Company Number: US-ABBVIE-13P-163-1043948-00

PATIENT
  Age: 60 Year
  Sex: Female
  Weight: 61.29 kg

DRUGS (10)
  1. HUMIRA (ABBOTT) [Suspect]
     Indication: RHEUMATOID ARTHRITIS
     Dates: start: 201208, end: 201210
  2. HUMIRA (ABBOTT) [Suspect]
     Dates: start: 201210
  3. CELEBREX [Concomitant]
     Indication: INFLAMMATION
  4. SOMA [Concomitant]
     Indication: MUSCLE RELAXANT THERAPY
  5. TRAMADOL HCL ER [Concomitant]
     Indication: PAIN
  6. ULTRACET [Concomitant]
     Indication: PAIN
  7. AVISTA [Concomitant]
     Indication: OSTEOPENIA
  8. AMLODIPINE [Concomitant]
     Indication: HYPERTENSION
  9. AMLODIPINE [Concomitant]
     Indication: ANGIOPATHY
  10. AMBIEN [Concomitant]
     Indication: INSOMNIA

REACTIONS (1)
  - Pain [Recovering/Resolving]
